FAERS Safety Report 24815626 (Version 1)
Quarter: 2025Q1

REPORT INFORMATION
  Report Type: Spontaneous
  Country: US (occurrence: US)
  Receive Date: 20250107
  Receipt Date: 20250107
  Transmission Date: 20250409
  Serious: Yes (Other)
  Sender: DR REDDYS
  Company Number: US-DRL-USA-USA/2025/01/000060

PATIENT
  Age: 66 Year
  Sex: Female

DRUGS (3)
  1. MERCAPTOPURINE [Suspect]
     Active Substance: MERCAPTOPURINE
     Indication: Autoimmune hepatitis
  2. PREDNISONE [Suspect]
     Active Substance: PREDNISONE
     Indication: Autoimmune hepatitis
  3. MYCOPHENOLATE MOFETIL [Suspect]
     Active Substance: MYCOPHENOLATE MOFETIL
     Indication: Autoimmune hepatitis

REACTIONS (6)
  - Hepatotoxicity [Unknown]
  - Disease progression [Unknown]
  - Hepatic cirrhosis [Unknown]
  - Drug ineffective for unapproved indication [Unknown]
  - Mixed hepatocellular cholangiocarcinoma [Unknown]
  - Metastatic neoplasm [Unknown]
